FAERS Safety Report 7518665-4 (Version None)
Quarter: 2011Q2

REPORT INFORMATION
  Report Type: 
  Country: None (occurrence: None)
  Receive Date: 20110602
  Receipt Date: 20110518
  Transmission Date: 20111010
  Serious: Yes (Hospitalization, Other)
  Sender: FDA-Public Use
  Company Number: PHHY2011BR45079

PATIENT
  Sex: Female

DRUGS (8)
  1. GLUCOSAMINE SULFATE W/CHONDROITIN [Concomitant]
     Indication: OSTEOARTHRITIS
     Dosage: 1 TABLET (400 MG CHONDROITIN + 500 MG GLUCOSAMINE SULFATE)
     Route: 048
  2. ASPIRIN [Concomitant]
     Indication: ANTICOAGULANT THERAPY
     Dosage: 100 MG, UNK
  3. RASILEZ [Suspect]
     Indication: HYPERTENSION
     Dosage: 300 MG, AT DINNER
     Route: 048
  4. CALCIUM CARBONATE W/VITAMIN D NOS [Concomitant]
     Indication: BONE DISORDER
     Dosage: 1 DF DAILY
     Route: 048
     Dates: start: 20100601
  5. DIOVAN HCT [Suspect]
     Indication: HYPERTENSION
     Dosage: 1 TABLET (160 MG VALSARTAN + 25 MG HYDROCHLOROTHIAZIDE) IN MORNING
     Route: 048
  6. FEMARA [Suspect]
     Indication: BREAST CANCER
     Dosage: 2.5 MG DAILY
     Dates: start: 20100601
  7. INSULIN [Concomitant]
     Indication: DIABETES MELLITUS
     Dosage: 15 MG, QD
     Dates: start: 20110201
  8. CILOSTAZOL [Concomitant]
     Dosage: 100 MG DAILY
     Route: 048

REACTIONS (5)
  - FALL [None]
  - ATRIOVENTRICULAR BLOCK [None]
  - DEPRESSION [None]
  - HEART RATE DECREASED [None]
  - ASTHENIA [None]
